FAERS Safety Report 5775479-3 (Version None)
Quarter: 2008Q2

REPORT INFORMATION
  Report Type: 
  Country: None (occurrence: None)
  Receive Date: 20080601
  Receipt Date: 20080219
  Transmission Date: 20081010
  Serious: No
  Sender: FDA-Public Use
  Company Number: US200710007059

PATIENT
  Age: 51 Year
  Sex: Female
  Weight: 109.3 kg

DRUGS (7)
  1. BYETTA [Suspect]
     Indication: TYPE 2 DIABETES MELLITUS
     Dosage: 5 UG, 2/D, SUBCUTANEOUS
     Route: 058
     Dates: start: 20071027
  2. METFORMIN HCL [Concomitant]
  3. METAGLIP (GLIPIZIDE, METFORMIN HYDROCHLORIDE) [Concomitant]
  4. COZAAR [Concomitant]
  5. CADUET (AMLODIPINE BESILATE, ATORVASTATIN CALCIUM) [Concomitant]
  6. ASPIRIN [Concomitant]
  7. CALCIUM (CALCIUM) [Concomitant]

REACTIONS (6)
  - ERUCTATION [None]
  - FATIGUE [None]
  - FEELING COLD [None]
  - FOOD AVERSION [None]
  - INJECTION SITE BRUISING [None]
  - NAUSEA [None]
